FAERS Safety Report 15273092 (Version 1)
Quarter: 2018Q3

REPORT INFORMATION
  Report Type: Spontaneous
  Country: US (occurrence: US)
  Receive Date: 20180813
  Receipt Date: 20180813
  Transmission Date: 20181010
  Serious: No
  Sender: FDA-Public Use
  Company Number: US-PURDUE-USA-2018-0144204

PATIENT
  Sex: Female

DRUGS (2)
  1. BUTRANS [Suspect]
     Active Substance: BUPRENORPHINE
     Indication: INTERVERTEBRAL DISC DISORDER
     Dosage: 20 MCG/KG, WEEKLY
     Route: 062
     Dates: end: 201604
  2. BUTRANS [Suspect]
     Active Substance: BUPRENORPHINE
     Indication: UNEVALUABLE EVENT

REACTIONS (2)
  - Inappropriate schedule of drug administration [Recovered/Resolved]
  - Intentional product misuse [Recovered/Resolved]
